FAERS Safety Report 20681737 (Version 3)
Quarter: 2022Q2

REPORT INFORMATION
  Report Type: Spontaneous
  Country: US (occurrence: US)
  Receive Date: 20220406
  Receipt Date: 20220511
  Transmission Date: 20220720
  Serious: No
  Sender: FDA-Public Use
  Company Number: US-JNJFOC-20220404946

PATIENT
  Sex: Female

DRUGS (2)
  1. STELARA [Suspect]
     Active Substance: USTEKINUMAB
     Indication: Crohn^s disease
     Dosage: STRENGTH: 90.00 MG/ML
     Route: 058
  2. STELARA [Suspect]
     Active Substance: USTEKINUMAB

REACTIONS (4)
  - Device deployment issue [Unknown]
  - Product leakage [Unknown]
  - Accidental exposure to product [Unknown]
  - Product dose omission issue [Unknown]
